FAERS Safety Report 8930684 (Version 3)
Quarter: 2013Q1

REPORT INFORMATION
  Report Type: Spontaneous
  Country: US (occurrence: US)
  Receive Date: 20121128
  Receipt Date: 20130110
  Transmission Date: 20140127
  Serious: Yes (Life-Threatening, Disabling)
  Sender: FDA-Public Use
  Company Number: US-009507513-1211USA011410

PATIENT
  Sex: Male

DRUGS (14)
  1. TEMODAR [Suspect]
     Indication: GLIOBLASTOMA MULTIFORME
     Dosage: 145 MG, QD
     Route: 048
     Dates: start: 20120924, end: 2012
  2. TRIAMTERENE [Concomitant]
  3. ATENOLOL [Concomitant]
  4. NEXIUM [Concomitant]
  5. CYCLOBENZAPRINE HYDROCHLORIDE [Concomitant]
  6. COMBIVENT [Concomitant]
  7. VICODIN [Concomitant]
  8. KEPPRA [Concomitant]
  9. OXYCODONE [Concomitant]
  10. ZOFRAN [Concomitant]
  11. DECADRON [Concomitant]
  12. BACTRIM [Concomitant]
  13. LOVENOX [Concomitant]
  14. ADVAIR [Concomitant]

REACTIONS (1)
  - Terminal state [Not Recovered/Not Resolved]
